FAERS Safety Report 5384380-9 (Version None)
Quarter: 2007Q3

REPORT INFORMATION
  Report Type: 
  Country: None (occurrence: None)
  Receive Date: 20070711
  Receipt Date: 20070417
  Transmission Date: 20080115
  Serious: Yes (Other)
  Sender: FDA-Public Use
  Company Number: US-AMGEN-US220197

PATIENT
  Sex: Male

DRUGS (4)
  1. ARANESP [Suspect]
     Indication: ANAEMIA OF MALIGNANT DISEASE
     Dates: start: 20070101
  2. IRINOTECAN HCL [Concomitant]
     Dates: start: 20061211
  3. VEPESID [Concomitant]
     Dates: start: 20061211
  4. CISPLATIN [Concomitant]
     Dates: start: 20061211

REACTIONS (2)
  - PNEUMONIA [None]
  - THERAPEUTIC RESPONSE DECREASED [None]
